FAERS Safety Report 11364658 (Version 1)
Quarter: 2015Q3

REPORT INFORMATION
  Report Type: Spontaneous
  Country: US (occurrence: None)
  Receive Date: 20150810
  Receipt Date: 20150810
  Transmission Date: 20151125
  Serious: No
  Sender: FDA-Public Use
  Company Number: None

PATIENT
  Age: 44 Year
  Sex: Female
  Weight: 73.94 kg

DRUGS (7)
  1. RYTARY [Suspect]
     Active Substance: CARBIDOPA\LEVODOPA
     Indication: PARKINSON^S DISEASE
     Dosage: 3 CAPSULES FOUR TIMES DAILY TAKEN BY MOUTH
     Route: 048
  2. NEUPRO [Concomitant]
     Active Substance: ROTIGOTINE
  3. DBS [Concomitant]
  4. AZILECT [Concomitant]
     Active Substance: RASAGILINE MESYLATE
  5. PAXIL [Concomitant]
     Active Substance: PAROXETINE HYDROCHLORIDE
  6. TASMAR [Concomitant]
     Active Substance: TOLCAPONE
  7. BIRTH CONTROL [Concomitant]
     Active Substance: UNSPECIFIED INGREDIENT

REACTIONS (3)
  - Intentional self-injury [None]
  - Anger [None]
  - Aggression [None]

NARRATIVE: CASE EVENT DATE: 20150805
